FAERS Safety Report 19922182 (Version 3)
Quarter: 2021Q4

REPORT INFORMATION
  Report Type: Report from Study
  Country: IT (occurrence: IT)
  Receive Date: 20211006
  Receipt Date: 20211213
  Transmission Date: 20220303
  Serious: Yes (Other)
  Sender: FDA-Public Use
  Company Number: NVSC2021IT218346

PATIENT
  Age: 63 Year
  Sex: Female

DRUGS (14)
  1. TRAMETINIB [Suspect]
     Active Substance: TRAMETINIB
     Indication: Malignant melanoma
     Dosage: 2 MG, QD
     Route: 048
     Dates: start: 20180507, end: 20190218
  2. TRAMETINIB [Suspect]
     Active Substance: TRAMETINIB
     Dosage: 2
     Route: 065
     Dates: start: 20190517, end: 20190630
  3. TRAMETINIB [Suspect]
     Active Substance: TRAMETINIB
     Dosage: 2
     Route: 065
     Dates: start: 20190703, end: 20191006
  4. TRAMETINIB [Suspect]
     Active Substance: TRAMETINIB
     Dosage: 2
     Route: 065
     Dates: start: 20191008
  5. TRAMETINIB [Suspect]
     Active Substance: TRAMETINIB
     Dosage: UNK, QD
     Route: 048
  6. TAFINLAR [Suspect]
     Active Substance: DABRAFENIB MESYLATE
     Indication: Malignant melanoma
     Dosage: 150 MG, BID
     Route: 065
     Dates: start: 20180507, end: 20190218
  7. TAFINLAR [Suspect]
     Active Substance: DABRAFENIB MESYLATE
     Dosage: 300
     Route: 065
     Dates: start: 20190517, end: 20190630
  8. TAFINLAR [Suspect]
     Active Substance: DABRAFENIB MESYLATE
     Dosage: 300
     Route: 065
     Dates: start: 20190703, end: 20191006
  9. TAFINLAR [Suspect]
     Active Substance: DABRAFENIB MESYLATE
     Dosage: 300
     Route: 065
     Dates: start: 20191008
  10. TAFINLAR [Suspect]
     Active Substance: DABRAFENIB MESYLATE
     Dosage: UNK, BID
     Route: 048
  11. DELAPRIL HYDROCHLORIDE\MANIDIPINE HYDROCHLORIDE [Concomitant]
     Active Substance: DELAPRIL HYDROCHLORIDE\MANIDIPINE HYDROCHLORIDE
     Indication: Hypertension
     Dosage: 1
     Route: 048
     Dates: start: 2010
  12. DELAPRIL HYDROCHLORIDE\MANIDIPINE HYDROCHLORIDE [Concomitant]
     Active Substance: DELAPRIL HYDROCHLORIDE\MANIDIPINE HYDROCHLORIDE
     Dosage: 30 MG+ 10 MG
     Route: 065
  13. LEVOTHYROXINE SODIUM [Concomitant]
     Active Substance: LEVOTHYROXINE SODIUM
     Indication: Thyroid disorder
     Dosage: 1 (100)
     Route: 048
     Dates: start: 2018
  14. LEVOTHYROXINE SODIUM [Concomitant]
     Active Substance: LEVOTHYROXINE SODIUM
     Dosage: 100 UG
     Route: 065

REACTIONS (1)
  - Bell^s palsy [Not Recovered/Not Resolved]

NARRATIVE: CASE EVENT DATE: 20210528
